FAERS Safety Report 25029776 (Version 2)
Quarter: 2025Q1

REPORT INFORMATION
  Report Type: Spontaneous
  Country: CN (occurrence: CN)
  Receive Date: 20250303
  Receipt Date: 20250306
  Transmission Date: 20250408
  Serious: Yes (Other)
  Sender: SANOFI AVENTIS
  Company Number: CN-MLMSERVICE-20250224-PI414815-00101-3

PATIENT
  Age: 55 Year
  Sex: Male

DRUGS (12)
  1. DOCETAXEL [Suspect]
     Active Substance: DOCETAXEL
     Indication: Lung cancer metastatic
     Dates: start: 20210112, end: 202104
  2. DOCETAXEL [Suspect]
     Active Substance: DOCETAXEL
     Indication: Metastases to diaphragm
  3. DOCETAXEL [Suspect]
     Active Substance: DOCETAXEL
     Indication: Metastases to bone
  4. DOCETAXEL [Suspect]
     Active Substance: DOCETAXEL
     Indication: Squamous cell carcinoma of the cervix
  5. CISPLATIN [Suspect]
     Active Substance: CISPLATIN
     Indication: Squamous cell carcinoma of the cervix
     Dates: start: 20210112
  6. CISPLATIN [Suspect]
     Active Substance: CISPLATIN
     Indication: Lung cancer metastatic
     Dosage: 40 MG, Q3W DAY 2-3
     Dates: start: 20210112, end: 202104
  7. CISPLATIN [Suspect]
     Active Substance: CISPLATIN
     Indication: Metastases to diaphragm
     Dates: start: 20200509
  8. CISPLATIN [Suspect]
     Active Substance: CISPLATIN
     Indication: Metastases to bone
     Dosage: 40 MG, Q3W (D2-3)
     Dates: start: 20200509
  9. GEMCITABINE [Concomitant]
     Active Substance: GEMCITABINE
     Indication: Squamous cell carcinoma of the cervix
     Dates: start: 20200509
  10. GEMCITABINE [Concomitant]
     Active Substance: GEMCITABINE
     Indication: Lung cancer metastatic
     Dates: start: 20200509, end: 2020
  11. GEMCITABINE [Concomitant]
     Active Substance: GEMCITABINE
     Indication: Metastases to diaphragm
  12. GEMCITABINE [Concomitant]
     Active Substance: GEMCITABINE
     Indication: Metastases to bone

REACTIONS (1)
  - Myelosuppression [Recovered/Resolved]

NARRATIVE: CASE EVENT DATE: 20210101
